FAERS Safety Report 25076739 (Version 1)
Quarter: 2025Q1

REPORT INFORMATION
  Report Type: Spontaneous
  Country: US (occurrence: US)
  Receive Date: 20250313
  Receipt Date: 20250313
  Transmission Date: 20250409
  Serious: Yes (Hospitalization)
  Sender: AMGEN
  Company Number: US-AMGEN-USASP2025043221

PATIENT

DRUGS (1)
  1. RITUXIMAB [Suspect]
     Active Substance: RITUXIMAB
     Indication: Alveolar proteinosis
     Route: 065

REACTIONS (9)
  - Unevaluable event [Unknown]
  - Hyperlipidaemia [Unknown]
  - Mental disorder [Unknown]
  - Obesity [Unknown]
  - Asthenia [Unknown]
  - Fatigue [Unknown]
  - Respiratory disorder [Unknown]
  - Hypertension [Unknown]
  - Off label use [Unknown]
